FAERS Safety Report 5366418-8 (Version None)
Quarter: 2007Q2

REPORT INFORMATION
  Report Type: 
  Country: None (occurrence: None)
  Receive Date: 20070619
  Receipt Date: 20070612
  Transmission Date: 20071010
  Serious: Yes (Death, Hospitalization)
  Sender: FDA-Public Use
  Company Number: 163-21880-06081514

PATIENT
  Age: 14 Year
  Sex: Female

DRUGS (2)
  1. REVLIMID [Suspect]
     Indication: HEPATOBLASTOMA RECURRENT
     Dosage: 20 MG, 1 IN 1 D, ORAL
     Route: 048
     Dates: start: 20060211, end: 20060428
  2. TEMODAR [Concomitant]

REACTIONS (3)
  - DISEASE PROGRESSION [None]
  - HEPATOBLASTOMA [None]
  - METASTASIS [None]
